FAERS Safety Report 6817006-5 (Version None)
Quarter: 2010Q2

REPORT INFORMATION
  Report Type: 
  Country: None (occurrence: None)
  Receive Date: 20100630
  Receipt Date: 20100616
  Transmission Date: 20101027
  Serious: Yes (Hospitalization)
  Sender: FDA-Public Use
  Company Number: 1000013554

PATIENT
  Age: 42 Year
  Sex: Female
  Weight: 55 kg

DRUGS (3)
  1. ESCITALOPRAM [Suspect]
     Indication: DEPRESSION
     Dosage: 10 MG (10 MG, 1 IN 1 D), ORAL
     Route: 048
     Dates: start: 20090901
  2. ESCITALOPRAM [Suspect]
     Indication: DEPRESSION
     Dosage: 15 MG (15 MG, 1 IN 1 D), ORAL
     Route: 048
     Dates: end: 20100119
  3. LYSANXIA [Concomitant]

REACTIONS (8)
  - ANXIETY [None]
  - BALANCE DISORDER [None]
  - CAROTID ARTERY ANEURYSM [None]
  - CEREBELLAR SYNDROME [None]
  - FEELING DRUNK [None]
  - NO REACTION ON PREVIOUS EXPOSURE TO DRUG [None]
  - TREMOR [None]
  - WEIGHT DECREASED [None]
